FAERS Safety Report 5212584-4 (Version None)
Quarter: 2006Q4

REPORT INFORMATION
  Report Type: 
  Country: None (occurrence: None)
  Receive Date: 20061102
  Receipt Date: 20060510
  Transmission Date: 20070319
  Serious: Yes (Other)
  Sender: FDA-Public Use
  Company Number: 27459

PATIENT
  Age: 46 Year
  Sex: Female
  Weight: 58.9676 kg

DRUGS (5)
  1. HALOPERIDOL DECANOATE [Suspect]
     Indication: PSYCHOTIC DISORDER
     Dosage: 100MG/IM/WEEKLY
     Route: 030
  2. COGENTIN [Concomitant]
  3. LITHIUM CARBONATE [Concomitant]
  4. LAMICTAL [Concomitant]
  5. XANAX [Concomitant]

REACTIONS (1)
  - DRUG INEFFECTIVE [None]
